FAERS Safety Report 4507370-4 (Version None)
Quarter: 2004Q4

REPORT INFORMATION
  Report Type: 
  Country: None (occurrence: None)
  Receive Date: 20041119
  Receipt Date: 20041108
  Transmission Date: 20050328
  Serious: Yes (Other)
  Sender: FDA-Public Use
  Company Number: 2004089560

PATIENT
  Sex: Male
  Weight: 72.5755 kg

DRUGS (6)
  1. DOXIDAN (BISACODYL) [Suspect]
     Indication: PROPHYLAXIS
     Dosage: 1 TABLET 4-7 TIMES PER WEEK, ORAL
     Route: 048
  2. CLONAZEPAM [Concomitant]
  3. SALBUTAMOL (SALBUTAMOL) [Concomitant]
  4. COMBIVENT [Concomitant]
  5. IPRATROPIUM BROMIDE [Concomitant]
  6. TRIAMCINOLONE ACETONIDE [Concomitant]

REACTIONS (1)
  - CATARACT [None]
